FAERS Safety Report 18503407 (Version 2)
Quarter: 2020Q4

REPORT INFORMATION
  Report Type: Spontaneous
  Country: CN (occurrence: CN)
  Receive Date: 20201113
  Receipt Date: 20201120
  Transmission Date: 20210114
  Serious: Yes (Hospitalization)
  Sender: FDA-Public Use
  Company Number: CN-PFIZER INC-2020445576

PATIENT
  Age: 3 Year
  Sex: Male
  Weight: 18.9 kg

DRUGS (9)
  1. METHOTREXATE. [Concomitant]
     Active Substance: METHOTREXATE
     Indication: CENTRAL NERVOUS SYSTEM LEUKAEMIA
     Dosage: 12.5 MG
     Route: 037
     Dates: start: 20201012, end: 20201012
  2. CYTARABINE. [Concomitant]
     Active Substance: CYTARABINE
     Indication: CENTRAL NERVOUS SYSTEM LEUKAEMIA
     Dosage: 35 MG
     Route: 037
     Dates: start: 20201012, end: 20201012
  3. DEXAMETHASONE. [Concomitant]
     Active Substance: DEXAMETHASONE
     Indication: CENTRAL NERVOUS SYSTEM LEUKAEMIA
     Dosage: 5 MG
     Route: 037
     Dates: start: 20201012, end: 20201012
  4. DEXAMETHASONE. [Concomitant]
     Active Substance: DEXAMETHASONE
     Dosage: 5 MG
     Route: 037
     Dates: start: 20201019, end: 20201019
  5. CYTOSAR [Suspect]
     Active Substance: CYTARABINE
     Indication: ACUTE LYMPHOCYTIC LEUKAEMIA
     Dosage: 0.07 G, 1X/DAY
     Route: 041
     Dates: start: 20201012, end: 20201023
  6. NORMAL SALINE [Concomitant]
     Active Substance: SODIUM CHLORIDE
     Dosage: 4 ML
     Route: 037
     Dates: start: 20201019, end: 20201019
  7. METHOTREXATE. [Concomitant]
     Active Substance: METHOTREXATE
     Dosage: 12.5 MG
     Route: 037
     Dates: start: 20201019, end: 20201019
  8. NORMAL SALINE [Concomitant]
     Active Substance: SODIUM CHLORIDE
     Indication: CENTRAL NERVOUS SYSTEM LEUKAEMIA
     Dosage: 4 ML
     Route: 037
     Dates: start: 20201012, end: 20201012
  9. CYTARABINE. [Concomitant]
     Active Substance: CYTARABINE
     Dosage: 35 MG
     Route: 037
     Dates: start: 20201019, end: 20201019

REACTIONS (4)
  - Nausea [Recovering/Resolving]
  - Myelosuppression [Recovering/Resolving]
  - Retching [Unknown]
  - Transaminases increased [Recovering/Resolving]

NARRATIVE: CASE EVENT DATE: 20201014
